FAERS Safety Report 11023030 (Version 2)
Quarter: 2015Q2

REPORT INFORMATION
  Report Type: Spontaneous
  Country: US (occurrence: US)
  Receive Date: 20150413
  Receipt Date: 20150413
  Transmission Date: 20150821
  Serious: No
  Sender: FDA-Public Use
  Company Number: US-ASTELLAS-2015US002650

PATIENT
  Age: 43 Year
  Sex: Female

DRUGS (2)
  1. PROTOPIC [Suspect]
     Active Substance: TACROLIMUS
     Indication: ACNE
     Dosage: UNK, UNKNOWN FREQ. FOR 1.5 MONTHS
     Route: 061
  2. PROTOPIC [Suspect]
     Active Substance: TACROLIMUS
     Indication: RASH
     Dosage: UNK, UNKNOWN FREQ.FOR 6 WEEKS
     Route: 061

REACTIONS (2)
  - Drug ineffective for unapproved indication [Not Recovered/Not Resolved]
  - Acne [Not Recovered/Not Resolved]
